FAERS Safety Report 13018415 (Version 2)
Quarter: 2017Q1

REPORT INFORMATION
  Report Type: Spontaneous
  Country: JP (occurrence: JP)
  Receive Date: 20161212
  Receipt Date: 20170216
  Transmission Date: 20170428
  Serious: Yes (Life-Threatening, Hospitalization)
  Sender: FDA-Public Use
  Company Number: JP-ELI_LILLY_AND_COMPANY-JP201606000530

PATIENT
  Age: 65 Year
  Sex: Female
  Weight: 47.1 kg

DRUGS (5)
  1. CYRAMZA [Suspect]
     Active Substance: RAMUCIRUMAB
     Dosage: 450 MG, OTHER
     Route: 042
     Dates: start: 20160527
  2. PACLITAXEL. [Concomitant]
     Active Substance: PACLITAXEL
     Indication: GASTRIC CANCER STAGE IV
     Dosage: 80 MG/M2, OTHER
     Route: 042
     Dates: start: 20160122
  3. PACLITAXEL. [Concomitant]
     Active Substance: PACLITAXEL
     Dosage: 105 MG, OTHER
     Route: 042
     Dates: start: 20160527
  4. CYRAMZA [Suspect]
     Active Substance: RAMUCIRUMAB
     Indication: GASTRIC CANCER STAGE IV
     Dosage: 8 MG/KG, OTHER
     Route: 042
     Dates: start: 20160122
  5. MAGMITT [Concomitant]
     Active Substance: MAGNESIUM OXIDE
     Indication: PRODUCT USED FOR UNKNOWN INDICATION
     Dosage: UNK
     Route: 065

REACTIONS (3)
  - Platelet count increased [Recovered/Resolved]
  - Tumour haemorrhage [Recovered/Resolved]
  - Pneumonia [Recovered/Resolved]

NARRATIVE: CASE EVENT DATE: 201604
